FAERS Safety Report 8598328-7 (Version None)
Quarter: 2012Q3

REPORT INFORMATION
  Report Type: 
  Country: None (occurrence: None)
  Receive Date: 20120816
  Receipt Date: 20120808
  Transmission Date: 20120928
  Serious: Yes (Other)
  Sender: FDA-Public Use
  Company Number: US-SANOFI-AVENTIS-2012SA057153

PATIENT
  Age: 49 Year
  Sex: Female
  Weight: 63.6 kg

DRUGS (7)
  1. LOVENOX [Suspect]
     Dosage: DOSE:90 UNIT(S)
     Route: 058
  2. LISINOPRIL [Concomitant]
  3. GLIPIZIDE [Concomitant]
  4. LANTUS [Concomitant]
  5. ESOMEPRAZOLE [Concomitant]
  6. MECLIZINE [Concomitant]
  7. HYDROXYZINE [Concomitant]

REACTIONS (4)
  - TACHYCARDIA [None]
  - DYSPNOEA [None]
  - PAIN [None]
  - BLOOD GLUCOSE INCREASED [None]
